FAERS Safety Report 5386391-6 (Version None)
Quarter: 2007Q3

REPORT INFORMATION
  Report Type: 
  Country: None (occurrence: None)
  Receive Date: 20070710
  Receipt Date: 20070625
  Transmission Date: 20080115
  Serious: Yes (Life-Threatening, Hospitalization)
  Sender: FDA-Public Use
  Company Number: US020435

PATIENT
  Age: 16 Month
  Sex: Female

DRUGS (1)
  1. ACTIQ [Suspect]
     Dosage: 1200 UG ONCE BUCCAL
     Route: 002
     Dates: start: 20060523, end: 20060523

REACTIONS (10)
  - ACCIDENTAL DRUG INTAKE BY CHILD [None]
  - ACIDOSIS [None]
  - COMA [None]
  - CONVULSION [None]
  - COORDINATION ABNORMAL [None]
  - HYPERTENSION [None]
  - MUSCLE RIGIDITY [None]
  - MYDRIASIS [None]
  - PNEUMONITIS [None]
  - TACHYCARDIA [None]
